FAERS Safety Report 7910726-0 (Version None)
Quarter: 2011Q4

REPORT INFORMATION
  Report Type: 
  Country: None (occurrence: None)
  Receive Date: 20111111
  Receipt Date: 20111004
  Transmission Date: 20120403
  Serious: Yes (Other)
  Sender: FDA-Public Use
  Company Number: PHEH2011US05233

PATIENT
  Sex: Female

DRUGS (24)
  1. VENTOLIN [Concomitant]
     Indication: ASTHMA
     Dosage: 2 OT, 7QD
     Dates: start: 20010101
  2. DOCUSATE [Concomitant]
     Indication: CONSTIPATION
     Dosage: 100 MG, 7QD
     Route: 048
     Dates: start: 20080101
  3. FAMOTIDINE [Concomitant]
     Indication: GASTROOESOPHAGEAL REFLUX DISEASE
     Dosage: 20 MG, BID
     Route: 048
     Dates: start: 20101221
  4. OXYBUTYNIN [Concomitant]
     Indication: HYPERTONIC BLADDER
     Dosage: 5 MG, BID
     Route: 048
     Dates: start: 20110501
  5. ACYCLOVIR [Concomitant]
     Indication: HERPES ZOSTER
     Dosage: 400 MG, Q4H
     Route: 048
     Dates: start: 20110707, end: 20110720
  6. GILENYA [Suspect]
     Indication: MULTIPLE SCLEROSIS
     Dosage: 0.5 MG, QD
     Route: 048
     Dates: start: 20110628, end: 20110706
  7. VITAMIN D [Concomitant]
     Indication: BONE DISORDER
     Dosage: 1.25 MG, 8QD
     Route: 048
     Dates: start: 20090101
  8. NEPHROCAPS [Concomitant]
     Indication: RENAL DISORDER
     Dosage: 1 DF, UNK
     Route: 048
     Dates: start: 20100101
  9. OXCARBAZEPINE [Concomitant]
     Indication: TRIGEMINAL NEURALGIA
     Dosage: 400 MG, BID
     Route: 048
     Dates: start: 20090101
  10. ARICEPT [Concomitant]
     Indication: AMNESIA
     Dosage: 10 MG, QD
     Route: 048
     Dates: start: 20110501, end: 20110501
  11. CETIRIZINE HCL [Concomitant]
     Indication: HYPERSENSITIVITY
     Dosage: 10 MG, QD
     Route: 048
     Dates: start: 20080101
  12. OXYCODONE HCL [Concomitant]
     Indication: PAIN
     Dosage: 1 DF, Q4H
     Route: 048
     Dates: start: 20101201
  13. GABAPENTIN [Concomitant]
     Indication: PAIN MANAGEMENT
     Dosage: 400 MG, TID
     Route: 048
     Dates: start: 20090101
  14. ONDANSETRON [Concomitant]
     Indication: NAUSEA
     Dosage: 4 MG, 7QD
     Route: 048
     Dates: start: 20080101
  15. ACETAMINOPHEN [Concomitant]
     Dosage: UNK UKN, UNK
  16. FLUTICASONE PROPIONATE [Concomitant]
     Indication: HYPERSENSITIVITY
     Dosage: 50 MG, BID
     Dates: start: 20070101
  17. CINNA [Concomitant]
     Indication: CONSTIPATION
     Dosage: 1 DF, 7QD
     Route: 048
     Dates: start: 20101201
  18. PREVACID [Concomitant]
     Indication: GASTROOESOPHAGEAL REFLUX DISEASE
     Dosage: 20 MG, BID
     Route: 048
     Dates: start: 20110628
  19. COPAXONE [Concomitant]
     Indication: MULTIPLE SCLEROSIS
     Dosage: 20 UG, QD
     Route: 058
     Dates: start: 20090116, end: 20110628
  20. ADVAIR DISKUS 100/50 [Concomitant]
     Indication: ASTHMA
     Dosage: 2 OT, UNK
     Dates: start: 20010101
  21. BACLOFEN [Concomitant]
     Indication: MUSCLE SPASMS
     Dosage: 10 MG, QID
     Route: 048
     Dates: start: 20090101
  22. GILENYA [Suspect]
     Dosage: 0.5 MG, QD
     Route: 048
     Dates: start: 20110727
  23. PROVIGIL [Concomitant]
     Dosage: UNK UKN, UNK
  24. ACYCLOVIR [Concomitant]
     Dosage: 400 MG, Q4H
     Route: 048
     Dates: start: 20110727, end: 20110917

REACTIONS (2)
  - HERPES ZOSTER [None]
  - NEURALGIA [None]
